FAERS Safety Report 6179384-2 (Version None)
Quarter: 2009Q2

REPORT INFORMATION
  Report Type: 
  Country: None (occurrence: None)
  Receive Date: 20090505
  Receipt Date: 20090430
  Transmission Date: 20091009
  Serious: Yes (Disabling)
  Sender: FDA-Public Use
  Company Number: A0781470A

PATIENT
  Age: 60 Year
  Sex: Male

DRUGS (5)
  1. NICORETTE [Suspect]
     Indication: SMOKING CESSATION THERAPY
     Route: 002
  2. NICORETTE [Suspect]
     Indication: SMOKING CESSATION THERAPY
     Route: 002
  3. ADVIL [Concomitant]
     Route: 048
  4. PLAVIX [Concomitant]
     Route: 048
  5. BENICAR [Concomitant]
     Route: 048

REACTIONS (1)
  - DEPENDENCE [None]
